FAERS Safety Report 7066498-8 (Version None)
Quarter: 2010Q4

REPORT INFORMATION
  Report Type: 
  Country: None (occurrence: None)
  Receive Date: 20101027
  Receipt Date: 20100324
  Transmission Date: 20110411
  Serious: No
  Sender: FDA-Public Use
  Company Number: US-WYE-H14349410

PATIENT
  Age: 66 Year
  Sex: Female
  Weight: 81.72 kg

DRUGS (1)
  1. PREMPRO [Suspect]
     Indication: HOT FLUSH
     Dosage: ^0.625 MG ^ FREQUENCY UNSPECIFIED,STARTED MANY YEARS AGO, TEMPORARILY STOPPED, THEN RESTARTED
     Route: 065

REACTIONS (2)
  - BODY HEIGHT DECREASED [None]
  - DRUG DOSE OMISSION [None]
